FAERS Safety Report 13155887 (Version 1)
Quarter: 2017Q1

REPORT INFORMATION
  Report Type: Spontaneous
  Country: US (occurrence: US)
  Receive Date: 20170126
  Receipt Date: 20170126
  Transmission Date: 20170428
  Serious: No
  Sender: FDA-Public Use
  Company Number: US-ROCHE-1435567

PATIENT
  Sex: Female
  Weight: 90.8 kg

DRUGS (3)
  1. XALATAN [Interacting]
     Active Substance: LATANOPROST
     Indication: GLAUCOMA
     Route: 065
  2. AZOPT [Concomitant]
     Active Substance: BRINZOLAMIDE
     Indication: GLAUCOMA
     Route: 065
  3. VALIUM [Suspect]
     Active Substance: DIAZEPAM
     Indication: ANXIETY
     Route: 065

REACTIONS (4)
  - Eye pain [Unknown]
  - Vision blurred [Unknown]
  - Infection [Unknown]
  - Drug interaction [Unknown]
